FAERS Safety Report 4665877-3 (Version None)
Quarter: 2005Q2

REPORT INFORMATION
  Report Type: 
  Country: None (occurrence: None)
  Receive Date: 20050517
  Receipt Date: 20050428
  Transmission Date: 20051028
  Serious: Yes (Hospitalization, Other)
  Sender: FDA-Public Use
  Company Number: USA050496790

PATIENT
  Age: 63 Year
  Sex: Female
  Weight: 95 kg

DRUGS (2)
  1. HUMULIN N [Suspect]
     Dosage: 80 U DAY
     Dates: start: 19940101
  2. HUMULIN R [Suspect]
     Dosage: 15 U DAY
     Dates: start: 20000101

REACTIONS (9)
  - BLOOD GLUCOSE FLUCTUATION [None]
  - CATARACT [None]
  - FORMICATION [None]
  - MYOCARDIAL INFARCTION [None]
  - PAIN IN EXTREMITY [None]
  - QUADRUPLE VESSEL BYPASS GRAFT [None]
  - SENSORY DISTURBANCE [None]
  - THROMBOSIS [None]
  - VISUAL ACUITY REDUCED [None]
